FAERS Safety Report 19923861 (Version 3)
Quarter: 2022Q1

REPORT INFORMATION
  Report Type: Report from Study
  Country: US (occurrence: US)
  Receive Date: 20211006
  Receipt Date: 20220111
  Transmission Date: 20220424
  Serious: No
  Sender: FDA-Public Use
  Company Number: NVSC2021US227750

PATIENT
  Sex: Male

DRUGS (3)
  1. ENTRESTO [Suspect]
     Active Substance: SACUBITRIL\VALSARTAN
     Indication: Product used for unknown indication
     Dosage: UNK
     Route: 065
  2. ENTRESTO [Suspect]
     Active Substance: SACUBITRIL\VALSARTAN
     Indication: Cardiac failure chronic
     Dosage: UNK
     Route: 065
  3. ENTRESTO [Suspect]
     Active Substance: SACUBITRIL\VALSARTAN
     Route: 065

REACTIONS (11)
  - Weight fluctuation [Unknown]
  - Apathy [Unknown]
  - Restlessness [Unknown]
  - COVID-19 [Unknown]
  - Heart rate increased [Unknown]
  - Feeling abnormal [Unknown]
  - Sleep disorder [Unknown]
  - Palpitations [Unknown]
  - Asthenia [Unknown]
  - Dizziness [Unknown]
  - Product dose omission issue [Unknown]
